FAERS Safety Report 9805483 (Version 3)
Quarter: 2014Q1

REPORT INFORMATION
  Report Type: Spontaneous
  Country: US (occurrence: None)
  Receive Date: 20140107
  Receipt Date: 20140203
  Transmission Date: 20141002
  Serious: Yes (Hospitalization, Disabling, Other)
  Sender: FDA-Public Use
  Company Number: 2013P1022264

PATIENT
  Age: 87 Year
  Sex: Male
  Weight: 86.18 kg

DRUGS (2)
  1. XENADERM OINTMENT [Suspect]
     Indication: DECUBITUS ULCER
     Route: 061
     Dates: start: 2010, end: 201312
  2. COUMADIN [Concomitant]

REACTIONS (26)
  - Cystitis [None]
  - Streptococcal infection [None]
  - Pneumonia [None]
  - Faecal incontinence [None]
  - Urinary incontinence [None]
  - Diarrhoea [None]
  - Impaired healing [None]
  - Drug ineffective [None]
  - Clostridium test positive [None]
  - Urinary tract infection [None]
  - Sepsis [None]
  - Mitral valve incompetence [None]
  - Pulmonary hypertension [None]
  - Dementia Alzheimer^s type [None]
  - Sepsis [None]
  - Clostridium difficile colitis [None]
  - Dysphagia [None]
  - Pleural effusion [None]
  - Type 2 diabetes mellitus [None]
  - Hypertension [None]
  - Hyperlipidaemia [None]
  - Benign prostatic hyperplasia [None]
  - Pneumonia aspiration [None]
  - Quadriplegia [None]
  - Osteoarthritis [None]
  - Carpal tunnel syndrome [None]
